FAERS Safety Report 7399349-2 (Version None)
Quarter: 2011Q1

REPORT INFORMATION
  Report Type: 
  Country: None (occurrence: None)
  Receive Date: 20110328
  Receipt Date: 20110314
  Transmission Date: 20110831
  Serious: Yes (Other)
  Sender: FDA-Public Use
  Company Number: DSA_45226_2011

PATIENT
  Age: 55 Year
  Sex: Female

DRUGS (3)
  1. LORAZEPAM [Concomitant]
  2. WELLBUTRIN XL [Suspect]
     Indication: MAJOR DEPRESSION
     Dosage: 300 MG, FREQUENCY UNKNOWN, ORAL
     Route: 048
  3. LAMOTRIGINE [Concomitant]

REACTIONS (3)
  - SCRATCH [None]
  - DRY EYE [None]
  - ULCERATIVE KERATITIS [None]
